FAERS Safety Report 4388598-3 (Version None)
Quarter: 2004Q2

REPORT INFORMATION
  Report Type: 
  Country: None (occurrence: None)
  Receive Date: 20040624
  Receipt Date: 20040609
  Transmission Date: 20050107
  Serious: Yes (Other)
  Sender: FDA-Public Use
  Company Number: JP-JNJFOC-20040602222

PATIENT
  Age: 87 Year
  Sex: Female

DRUGS (6)
  1. LEVOFLOXACIN [Suspect]
     Indication: ASTHMA
     Dosage: 500 MG
  2. ENALAPRIL MALEATE [Concomitant]
  3. HYDROCHLOROTHIAZIDE [Concomitant]
  4. DOXAZOSIN (DOXAZOSIN) [Concomitant]
  5. TERBUTALINE SULFATE [Concomitant]
  6. BUDESONIDE (BUDESONIDE) [Concomitant]

REACTIONS (1)
  - MYOSITIS [None]
